FAERS Safety Report 8901748 (Version 1)
Quarter: 2012Q4

REPORT INFORMATION
  Report Type: Spontaneous
  Country: US (occurrence: None)
  Receive Date: 20121105
  Receipt Date: 20121105
  Transmission Date: 20130627
  Serious: Yes (Hospitalization, Other)
  Sender: FDA-Public Use
  Company Number: 2012-002955

PATIENT
  Age: 61 Year
  Sex: Female

DRUGS (23)
  1. ACTONEL (RISEDRONATE SODIUM) TABLET, 35MG [Suspect]
     Route: 048
     Dates: start: 20060302, end: 201007
  2. ALENDRONATE [Suspect]
     Route: 048
     Dates: start: 20100913, end: 201109
  3. FOSAMAX (ALENDRONATE SODIUM) [Suspect]
  4. AMITRIPTYLINE [Concomitant]
  5. LEXAPRO (ESCITALOPRAM OXALATE) [Concomitant]
  6. LIPITOR (ATORVASTATIN CALCIUM) [Concomitant]
  7. SIMVASTATIN [Concomitant]
  8. OMEPRAZOLE [Concomitant]
  9. LISINOPRIL [Concomitant]
  10. LOTREL (AMLODIPINE BESILATE, BENAZEPRIL HYDROCHLORIDE) [Concomitant]
  11. PREDNISONE [Concomitant]
  12. METHYLPREDNISOLONE [Concomitant]
  13. VITAMIN D (COLECALCIFEROL) [Concomitant]
  14. LORAZEPAM [Concomitant]
  15. ALPRAZOLAM [Concomitant]
  16. GABAPENTIN [Concomitant]
  17. HYDROCODONE BITARTRATE AND ACETAMINOPHEN (HYDROCODONE BITARTRATE, PARACETAMOL) [Concomitant]
  18. FENTANYL [Concomitant]
  19. ROSUVASTATIN [Concomitant]
  20. LOSARTAN [Concomitant]
  21. CYCLOBENZAPRINE [Concomitant]
  22. ALBUTEROL (SALBUTAMOL) [Concomitant]
  23. LEVOTHYROXINE [Concomitant]

REACTIONS (13)
  - Stress fracture [None]
  - Femur fracture [None]
  - Muscular weakness [None]
  - Arthralgia [None]
  - Joint effusion [None]
  - Chondropathy [None]
  - Bone infarction [None]
  - Bone contusion [None]
  - Spinal compression fracture [None]
  - Intervertebral disc degeneration [None]
  - Intervertebral disc protrusion [None]
  - Fall [None]
  - Gait disturbance [None]
